FAERS Safety Report 24639890 (Version 1)
Quarter: 2024Q4

REPORT INFORMATION
  Report Type: Report from Study
  Country: CA (occurrence: CA)
  Receive Date: 20241120
  Receipt Date: 20241120
  Transmission Date: 20250115
  Serious: Yes (Other)
  Sender: ABBVIE
  Company Number: CA-ABBVIE-6001118

PATIENT
  Sex: Male

DRUGS (2)
  1. LUPRON DEPOT [Suspect]
     Active Substance: LEUPROLIDE ACETATE
     Indication: Prostate cancer
     Route: 030
     Dates: start: 20220601
  2. RADIUM [Suspect]
     Active Substance: RADIUM
     Indication: Bone cancer
     Route: 065

REACTIONS (3)
  - Bone cancer [Unknown]
  - Pelvic discomfort [Recovering/Resolving]
  - Pelvic pain [Recovering/Resolving]
